FAERS Safety Report 18493059 (Version 1)
Quarter: 2020Q4

REPORT INFORMATION
  Report Type: Report from Study
  Country: DE (occurrence: AR)
  Receive Date: 20201111
  Receipt Date: 20201111
  Transmission Date: 20210114
  Serious: Yes (Death, Hospitalization)
  Sender: FDA-Public Use
  Company Number: DE-JNJFOC-A-NJ2020-205907

PATIENT
  Age: 59 Year
  Sex: Female

DRUGS (4)
  1. SILDENAFIL. [Concomitant]
     Active Substance: SILDENAFIL
     Indication: PULMONARY HYPERTENSION
     Dosage: UNK
  2. BOSENTAN. [Concomitant]
     Active Substance: BOSENTAN
     Indication: SYSTEMIC SCLERODERMA
     Dosage: UNK
     Dates: end: 20200524
  3. VENTAVIS [Suspect]
     Active Substance: ILOPROST
     Indication: PULMONARY HYPERTENSION
     Dosage: 20 MCG, 6ID
     Route: 055
     Dates: start: 20191029, end: 20200524
  4. VENTAVIS [Suspect]
     Active Substance: ILOPROST
     Dosage: 20 MCG, 6ID
     Route: 055
     Dates: end: 20201031

REACTIONS (3)
  - Respiratory arrest [Fatal]
  - Disease progression [Not Recovered/Not Resolved]
  - Tachycardia [Not Recovered/Not Resolved]

NARRATIVE: CASE EVENT DATE: 20200525
